FAERS Safety Report 5106121-2 (Version None)
Quarter: 2006Q3

REPORT INFORMATION
  Report Type: 
  Country: None (occurrence: None)
  Receive Date: 20060911
  Receipt Date: 20060830
  Transmission Date: 20061208
  Serious: Yes (Other)
  Sender: FDA-Public Use
  Company Number: HQWYE186731AUG06

PATIENT
  Age: 16 Year
  Sex: Female
  Weight: 40.86 kg

DRUGS (2)
  1. EFFEXOR XR [Suspect]
     Indication: DEPRESSION
     Dosage: ORAL
     Route: 048
  2. ALCOHOL (ETHANOL) [Suspect]
     Dosage: 3 BEERS AND SOME VODKA
     Dates: start: 20060826, end: 20060826

REACTIONS (3)
  - ALCOHOL INTERACTION [None]
  - FATIGUE [None]
  - LOSS OF CONSCIOUSNESS [None]
